FAERS Safety Report 13557192 (Version 3)
Quarter: 2018Q2

REPORT INFORMATION
  Report Type: Spontaneous
  Country: BR (occurrence: BR)
  Receive Date: 20170518
  Receipt Date: 20180403
  Transmission Date: 20180711
  Serious: Yes (Other)
  Sender: FDA-Public Use
  Company Number: BR-ABBVIE-17P-020-1978094-00

PATIENT
  Age: 10 Year
  Sex: Female

DRUGS (1)
  1. LUPRON DEPOT-PED [Suspect]
     Active Substance: LEUPROLIDE ACETATE
     Indication: PRECOCIOUS PUBERTY
     Route: 065
     Dates: start: 201612

REACTIONS (4)
  - Decubitus ulcer [Unknown]
  - Injection site erythema [Unknown]
  - Injection site abscess [Unknown]
  - Fistula [Unknown]

NARRATIVE: CASE EVENT DATE: 20170508
